FAERS Safety Report 10587293 (Version 4)
Quarter: 2014Q4

REPORT INFORMATION
  Report Type: Report from Study
  Country: CZ (occurrence: CZ)
  Receive Date: 20141117
  Receipt Date: 20141201
  Transmission Date: 20150529
  Serious: Yes (Death, Hospitalization)
  Sender: FDA-Public Use
  Company Number: CZ-SA-2014SA152108

PATIENT
  Age: 60 Year
  Sex: Male
  Weight: 84 kg

DRUGS (10)
  1. ZALDIAR [Concomitant]
     Active Substance: ACETAMINOPHEN\TRAMADOL HYDROCHLORIDE
     Dosage: 1-0-1
     Route: 048
  2. CABAZITAXEL [Suspect]
     Active Substance: CABAZITAXEL
     Indication: HORMONE-REFRACTORY PROSTATE CANCER
     Route: 065
     Dates: start: 20141027
  3. MILURIT [Concomitant]
     Active Substance: ALLOPURINOL
     Dosage: STRENGTH: 100MG?DOSE: 0-1-0
     Route: 048
  4. NITROFURANTOIN. [Concomitant]
     Active Substance: NITROFURANTOIN
     Dosage: 0-0-1
     Route: 048
  5. ALL OTHER THERAPEUTIC PRODUCTS [Concomitant]
     Active Substance: UNSPECIFIED INGREDIENT
     Dosage: 1-0-1
     Route: 048
  6. PREDNISONE. [Concomitant]
     Active Substance: PREDNISONE
     Dosage: 1-0-1
     Route: 048
  7. BETAXA [Concomitant]
     Dosage: STRENGTH: 20 MG?1 / 4-0-0
     Route: 048
  8. FRONTIN [Concomitant]
     Active Substance: ALPRAZOLAM
     Dosage: 0.25 MG TBL. ORAL 0-0-1
     Route: 048
  9. STILNOX [Concomitant]
     Active Substance: ZOLPIDEM TARTRATE
     Dosage: 1 / N
     Route: 048
  10. PREDNISONE. [Suspect]
     Active Substance: PREDNISONE
     Indication: HORMONE-REFRACTORY PROSTATE CANCER
     Route: 065

REACTIONS (4)
  - General physical health deterioration [Fatal]
  - Fatigue [Not Recovered/Not Resolved]
  - Paraesthesia [Not Recovered/Not Resolved]
  - Dyspnoea exertional [Not Recovered/Not Resolved]

NARRATIVE: CASE EVENT DATE: 20141027
